FAERS Safety Report 12001476 (Version 3)
Quarter: 2016Q2

REPORT INFORMATION
  Report Type: Report from Study
  Country: US (occurrence: US)
  Receive Date: 20160204
  Receipt Date: 20160628
  Transmission Date: 20160815
  Serious: Yes (Hospitalization)
  Sender: FDA-Public Use
  Company Number: US-ACTELION-A-NJ2016-130758

PATIENT
  Age: 70 Year
  Sex: Female

DRUGS (1)
  1. VELETRI [Suspect]
     Active Substance: EPOPROSTENOL
     Indication: PULMONARY HYPERTENSION
     Dosage: UNK
     Route: 042
     Dates: start: 20150106

REACTIONS (8)
  - Herpes zoster [Unknown]
  - Catheter site scab [Unknown]
  - Pain in extremity [Unknown]
  - Painful respiration [Unknown]
  - Catheter site infection [Unknown]
  - Dizziness [Unknown]
  - Dyspnoea [Unknown]
  - Device related infection [Unknown]
